FAERS Safety Report 7707182-4 (Version None)
Quarter: 2011Q3

REPORT INFORMATION
  Report Type: 
  Country: None (occurrence: None)
  Receive Date: 20110824
  Receipt Date: 20110427
  Transmission Date: 20111222
  Serious: No
  Sender: FDA-Public Use
  Company Number: US-ALLERGAN-1105890US

PATIENT
  Age: 39 Year
  Sex: Male

DRUGS (1)
  1. OZURDEX [Suspect]
     Indication: UVEITIS
     Dosage: UNK
     Route: 030
     Dates: start: 20110401

REACTIONS (2)
  - DEVICE EXPULSION [None]
  - SEDATION [None]
